FAERS Safety Report 9054030 (Version 1)
Quarter: 2013Q1

REPORT INFORMATION
  Report Type: Spontaneous
  Country: US (occurrence: None)
  Receive Date: 20130117
  Receipt Date: 20130117
  Transmission Date: 20140127
  Serious: Yes (Death)
  Sender: FDA-Public Use
  Company Number: AUR-APL-2013-00264

PATIENT
  Age: 39 Year
  Sex: Male

DRUGS (3)
  1. ALPRAZOLAM (ALPRAZOLAM) [Suspect]
     Indication: PRODUCT USED FOR UNKNOWN INDICATION
  2. PAROXETINE (PAROXETINE) [Suspect]
  3. MORPHINE [Suspect]
     Route: 048

REACTIONS (1)
  - Toxicity to various agents [None]
